FAERS Safety Report 6896798-3 (Version None)
Quarter: 2010Q3

REPORT INFORMATION
  Report Type: 
  Country: None (occurrence: None)
  Receive Date: 20100802
  Receipt Date: 20070320
  Transmission Date: 20110219
  Serious: No
  Sender: FDA-Public Use
  Company Number: US-PFIZER INC-2007005924

PATIENT
  Age: 54 Year
  Sex: Female

DRUGS (5)
  1. LYRICA [Suspect]
     Indication: PAIN
     Route: 048
  2. LYRICA [Suspect]
     Indication: DIABETIC NEUROPATHY
  3. CYMBALTA [Concomitant]
  4. ALTACE [Concomitant]
  5. SYNTHROID [Concomitant]

REACTIONS (1)
  - INTRAOCULAR PRESSURE INCREASED [None]
